FAERS Safety Report 12210973 (Version 1)
Quarter: 2016Q1

REPORT INFORMATION
  Report Type: Spontaneous
  Country: CO (occurrence: CO)
  Receive Date: 20160325
  Receipt Date: 20160325
  Transmission Date: 20160526
  Serious: Yes (Other)
  Sender: FDA-Public Use
  Company Number: CO-REGENERON PHARMACEUTICALS, INC.-2016-14397

PATIENT

DRUGS (3)
  1. EYLEA [Suspect]
     Active Substance: AFLIBERCEPT
     Dosage: 11 DOSES OF EYLIA IN LEFT EYE
  2. EYLEA [Suspect]
     Active Substance: AFLIBERCEPT
     Indication: PRODUCT USED FOR UNKNOWN INDICATION
     Dosage: 4 DOSED OF EYLIA IN RIGHT EYE
  3. EYLEA [Suspect]
     Active Substance: AFLIBERCEPT
     Dosage: UNK

REACTIONS (10)
  - Retinopathy [Unknown]
  - Eye naevus [Unknown]
  - Iridocyclitis [Unknown]
  - Intraocular pressure increased [Recovering/Resolving]
  - Vision blurred [Unknown]
  - Corneal deposits [Recovering/Resolving]
  - Anterior chamber cell [Recovering/Resolving]
  - Ocular hyperaemia [Unknown]
  - Cystoid macular oedema [Unknown]
  - Detachment of macular retinal pigment epithelium [Unknown]
